FAERS Safety Report 5644587-X (Version None)
Quarter: 2008Q1

REPORT INFORMATION
  Report Type: 
  Country: None (occurrence: None)
  Receive Date: 20080229
  Receipt Date: 20070322
  Transmission Date: 20080703
  Serious: No
  Sender: FDA-Public Use
  Company Number: A0644297A

PATIENT
  Age: 48 Year
  Sex: Female

DRUGS (3)
  1. VALTREX [Suspect]
     Indication: GENITAL HERPES
     Dosage: 500MG PER DAY
     Route: 048
     Dates: start: 20061012
  2. CLARINEX [Concomitant]
  3. ASTELIN [Concomitant]

REACTIONS (3)
  - PAIN [None]
  - SOMNOLENCE [None]
  - VULVITIS [None]
